FAERS Safety Report 5491947-6 (Version None)
Quarter: 2007Q4

REPORT INFORMATION
  Report Type: 
  Country: None (occurrence: None)
  Receive Date: 20071022
  Receipt Date: 20071012
  Transmission Date: 20080405
  Serious: Yes (Other)
  Sender: FDA-Public Use
  Company Number: RU-ELI_LILLY_AND_COMPANY-RU200709003513

PATIENT
  Sex: Male
  Weight: 80 kg

DRUGS (4)
  1. ENZASTAURIN (LY317615) [Suspect]
     Indication: DIFFUSE LARGE B-CELL LYMPHOMA
     Dosage: 500 MG, DAILY (1/D)
     Route: 048
     Dates: start: 20070405
  2. GEMCITABINE HCL [Suspect]
     Indication: DIFFUSE LARGE B-CELL LYMPHOMA
     Dosage: 1000 MG/M2, DAY 2 EVERY 2 WEEKS
     Route: 042
     Dates: start: 20070405
  3. *RITUXIMAB [Suspect]
     Indication: DIFFUSE LARGE B-CELL LYMPHOMA
     Dosage: 375 MG/M2, DAY 1 EVERY TWO WEEKS
     Route: 042
     Dates: start: 20070404
  4. OXALIPLATIN [Suspect]
     Indication: DIFFUSE LARGE B-CELL LYMPHOMA
     Dosage: 100 MG/M2, DAY 2 EVERY 2 WEEKS
     Route: 042
     Dates: start: 20070405

REACTIONS (2)
  - DYSAESTHESIA [None]
  - HYPOAESTHESIA ORAL [None]
